FAERS Safety Report 22614204 (Version 1)
Quarter: 2023Q2

REPORT INFORMATION
  Report Type: Other
  Country: US (occurrence: None)
  Receive Date: 20230619
  Receipt Date: 20230619
  Transmission Date: 20230721
  Serious: Yes (Other)
  Sender: FDA-Public Use
  Company Number: US-ROCHE-3369237

PATIENT

DRUGS (2)
  1. RITUXIMAB [Suspect]
     Active Substance: RITUXIMAB
     Indication: Non-Hodgkin^s lymphoma refractory
     Route: 042
  2. EPACMARSTOBART [Suspect]
     Active Substance: EPACMARSTOBART
     Indication: Non-Hodgkin^s lymphoma refractory
     Route: 065

REACTIONS (3)
  - Lymphocyte count decreased [Unknown]
  - Infusion related reaction [Unknown]
  - COVID-19 [Unknown]
